FAERS Safety Report 18186838 (Version 2)
Quarter: 2020Q3

REPORT INFORMATION
  Report Type: Spontaneous
  Country: US (occurrence: US)
  Receive Date: 20200824
  Receipt Date: 20200825
  Transmission Date: 20201103
  Serious: No
  Sender: FDA-Public Use
  Company Number: US-PFIZER INC-2020325856

PATIENT
  Age: 8 Year
  Sex: Male
  Weight: 117.48 kg

DRUGS (3)
  1. VYVANSE [Concomitant]
     Active Substance: LISDEXAMFETAMINE DIMESYLATE
     Indication: IMPULSIVE BEHAVIOUR
     Dosage: 50 MG, 1X/DAY
     Route: 048
  2. GEODON [Suspect]
     Active Substance: ZIPRASIDONE HYDROCHLORIDE\ZIPRASIDONE MESYLATE
     Indication: AFFECTIVE DISORDER
     Dosage: 60 MG, 2X/DAY (TWICE DAILY FOR TWO YEARS)
     Route: 048
  3. CLONIDINE. [Concomitant]
     Active Substance: CLONIDINE
     Indication: IMPULSIVE BEHAVIOUR
     Dosage: 0.1 MG, 4X/DAY
     Route: 048

REACTIONS (1)
  - Weight increased [Not Recovered/Not Resolved]
